FAERS Safety Report 16156909 (Version 1)
Quarter: 2019Q2

REPORT INFORMATION
  Report Type: Spontaneous
  Country: US (occurrence: US)
  Receive Date: 20190404
  Receipt Date: 20190404
  Transmission Date: 20190711
  Serious: No
  Sender: FDA-Public Use
  Company Number: US-GLAXOSMITHKLINE-US2019GSK028268

PATIENT
  Sex: Female

DRUGS (1)
  1. BREO ELLIPTA [Suspect]
     Active Substance: FLUTICASONE FUROATE\VILANTEROL TRIFENATATE
     Indication: PRODUCT USED FOR UNKNOWN INDICATION
     Dosage: UNK
     Route: 055
     Dates: start: 2018

REACTIONS (10)
  - Chest pain [Unknown]
  - Candida infection [Unknown]
  - Rhinorrhoea [Unknown]
  - Nasal congestion [Unknown]
  - Therapeutic product effect incomplete [Unknown]
  - Bronchial disorder [Unknown]
  - Cough [Unknown]
  - Productive cough [Unknown]
  - Back pain [Unknown]
  - Oral pain [Unknown]
